FAERS Safety Report 23330677 (Version 1)
Quarter: 2023Q4

REPORT INFORMATION
  Report Type: Spontaneous
  Country: ES (occurrence: None)
  Receive Date: 20231222
  Receipt Date: 20231222
  Transmission Date: 20240110
  Serious: Yes (Life-Threatening)
  Sender: FDA-Public Use
  Company Number: 2023A288114

PATIENT
  Age: 70 Year
  Sex: Male

DRUGS (1)
  1. IMFINZI [Suspect]
     Active Substance: DURVALUMAB
     Indication: Lung neoplasm malignant
     Dosage: 1500 MG
     Route: 040
     Dates: start: 20230807, end: 20230828

REACTIONS (1)
  - Anaplastic large cell lymphoma T- and null-cell types [Recovering/Resolving]

NARRATIVE: CASE EVENT DATE: 20230816
